FAERS Safety Report 8006251-1 (Version None)
Quarter: 2011Q4

REPORT INFORMATION
  Report Type: 
  Country: None (occurrence: None)
  Receive Date: 20111226
  Receipt Date: 20111214
  Transmission Date: 20120403
  Serious: Yes (Hospitalization, Other)
  Sender: FDA-Public Use
  Company Number: PHHY2011CH109282

PATIENT
  Age: 90 Year
  Sex: Female

DRUGS (10)
  1. ASPIRIN [Suspect]
     Dosage: 100 MG, UNK
     Dates: start: 20090101, end: 20110131
  2. DICLOFENAC SODIUM [Suspect]
     Route: 061
     Dates: start: 20090101
  3. ACETAMINOPHEN [Concomitant]
     Dosage: 1 G, UNK
     Route: 048
     Dates: start: 20100801, end: 20110131
  4. CITALOPRAM MEPHA [Interacting]
     Dosage: 20 MG, UNK
     Route: 048
     Dates: start: 20090101
  5. FLECTOR [Suspect]
     Dosage: UNK
     Route: 061
     Dates: start: 20100701
  6. CANDESARTAN CILEXETIL [Concomitant]
     Dosage: 16 MG, QD
     Dates: start: 20100801, end: 20110131
  7. NEXIUM [Concomitant]
     Dosage: 40 MG, UNK
     Route: 048
     Dates: start: 20090101, end: 20110131
  8. RAMIPRIL [Concomitant]
     Dosage: 2.5 MG, QD
     Route: 048
  9. AMLODIPINE [Concomitant]
     Dosage: 5 MG, QD
     Route: 048
     Dates: start: 20100801, end: 20110131
  10. TILUR [Interacting]
     Dosage: 90 MG, UNK
     Route: 048
     Dates: start: 20101001, end: 20110131

REACTIONS (6)
  - HAEMATEMESIS [None]
  - HERNIA [None]
  - MELAENA [None]
  - HAEMORRHAGIC ANAEMIA [None]
  - TACHYCARDIA [None]
  - DRUG INTERACTION [None]
